FAERS Safety Report 15980573 (Version 1)
Quarter: 2019Q1

REPORT INFORMATION
  Report Type: Spontaneous
  Country: FR (occurrence: FR)
  Receive Date: 20190219
  Receipt Date: 20190219
  Transmission Date: 20190418
  Serious: Yes (Hospitalization, Disabling, Other)
  Sender: FDA-Public Use
  Company Number: FR-MYLANLABS-2019M1010841

PATIENT
  Age: 8 Year
  Sex: Female

DRUGS (1)
  1. QUININE [Suspect]
     Active Substance: QUININE
     Indication: MALARIA
     Dosage: UNK
     Route: 042

REACTIONS (12)
  - Mydriasis [Recovering/Resolving]
  - Ventricular tachycardia [Unknown]
  - Intentional product misuse [Unknown]
  - Hypothermia [Recovering/Resolving]
  - Drug level increased [Unknown]
  - Retinal oedema [Unknown]
  - Product preparation issue [Unknown]
  - Coma [Recovering/Resolving]
  - Status epilepticus [Recovering/Resolving]
  - Bradycardia [Recovering/Resolving]
  - Drug abuse [Unknown]
  - Blindness [Recovered/Resolved]
